FAERS Safety Report 6994659-2 (Version None)
Quarter: 2010Q3

REPORT INFORMATION
  Report Type: 
  Country: None (occurrence: None)
  Receive Date: 20100915
  Receipt Date: 20100915
  Transmission Date: 20110219
  Serious: Yes (Hospitalization)
  Sender: FDA-Public Use
  Company Number: None

PATIENT
  Age: 61 Year
  Sex: Male
  Weight: 87 kg

DRUGS (1)
  1. ACETAZOLAMIDE [Suspect]
     Indication: HYDROCEPHALUS
     Dosage: MG BID PO
     Route: 048
     Dates: start: 20100904, end: 20100912

REACTIONS (4)
  - ATAXIA [None]
  - FALL [None]
  - GAIT DISTURBANCE [None]
  - MENTAL STATUS CHANGES [None]
